FAERS Safety Report 7948382-8 (Version None)
Quarter: 2011Q4

REPORT INFORMATION
  Report Type: 
  Country: None (occurrence: None)
  Receive Date: 20111130
  Receipt Date: 20111123
  Transmission Date: 20120403
  Serious: Yes (Hospitalization)
  Sender: FDA-Public Use
  Company Number: NL-AMGEN-NLDSP2011062241

PATIENT
  Age: 62 Year

DRUGS (13)
  1. CIPROFLOXACINE                     /00697201/ [Concomitant]
  2. METFORMIN HCL [Concomitant]
  3. PARACETAMOL [Concomitant]
  4. CETOMACROGOL                       /01813001/ [Concomitant]
  5. KLYX [Concomitant]
  6. NEULASTA [Suspect]
     Indication: PRODUCT USED FOR UNKNOWN INDICATION
     Dosage: 6 MG, Q2WK
     Route: 058
     Dates: start: 20111025
  7. LACTULOSE [Concomitant]
  8. MOVICOLON [Concomitant]
  9. PANTOPRAZOLE [Concomitant]
  10. PRIMPERAN TAB [Concomitant]
  11. ALLOPURINOL [Concomitant]
  12. AMIODARON                          /00133101/ [Concomitant]
  13. FRAGMIN [Concomitant]

REACTIONS (2)
  - PAIN [None]
  - PYREXIA [None]
